FAERS Safety Report 21784848 (Version 1)
Quarter: 2022Q4

REPORT INFORMATION
  Report Type: Spontaneous
  Country: US (occurrence: US)
  Receive Date: 20221227
  Receipt Date: 20221227
  Transmission Date: 20230113
  Serious: Yes (Other)
  Sender: FDA-Public Use
  Company Number: US-PFIZER INC-202201384262

PATIENT
  Age: 80 Year
  Sex: Female
  Weight: 113.4 kg

DRUGS (2)
  1. PAXLOVID [Suspect]
     Active Substance: NIRMATRELVIR\RITONAVIR
     Indication: COVID-19 treatment
     Dosage: 3 DF, 2X/DAY (2 PINK AND 1 WHITE TABLETS FOR 5 DAYS; TWICE A DAY)
     Dates: start: 20221212, end: 20221217
  2. KEPPRA [Concomitant]
     Active Substance: LEVETIRACETAM
     Dosage: UNK

REACTIONS (7)
  - Tremor [Unknown]
  - Gait disturbance [Unknown]
  - Taste disorder [Unknown]
  - Thirst [Unknown]
  - Dry mouth [Unknown]
  - COVID-19 [Unknown]
  - Disease recurrence [Unknown]

NARRATIVE: CASE EVENT DATE: 20221212
